FAERS Safety Report 4422855-7 (Version None)
Quarter: 2004Q3

REPORT INFORMATION
  Report Type: 
  Country: None (occurrence: None)
  Receive Date: 20040809
  Receipt Date: 20040809
  Transmission Date: 20050211
  Serious: Yes (Disabling)
  Sender: FDA-Public Use
  Company Number: None

PATIENT
  Age: 80 Year
  Sex: Male
  Weight: 90.7194 kg

DRUGS (3)
  1. TRILEPTAL [Suspect]
     Indication: HEADACHE
     Dosage: 600 MG BID ORAL
     Route: 048
     Dates: start: 20040127, end: 20040527
  2. INDERAL [Concomitant]
  3. DEPAKOE [Concomitant]

REACTIONS (1)
  - MEIGE'S SYNDROME [None]
